FAERS Safety Report 5947113-0 (Version None)
Quarter: 2008Q4

REPORT INFORMATION
  Report Type: 
  Country: None (occurrence: None)
  Receive Date: 20081106
  Receipt Date: 20081022
  Transmission Date: 20090506
  Serious: Yes (Death)
  Sender: FDA-Public Use
  Company Number: 08-214

PATIENT
  Age: 41 Year
  Sex: Male
  Weight: 86.1834 kg

DRUGS (16)
  1. FAZACLO ODT [Suspect]
     Indication: BIPOLAR DISORDER
     Dosage: 175 MG DAILY PO
     Route: 048
  2. FAZACLO ODT [Suspect]
     Indication: SCHIZOAFFECTIVE DISORDER
     Dosage: 175 MG DAILY PO
     Route: 048
  3. ABILIFY [Concomitant]
  4. CELEXA [Concomitant]
  5. COGENTIN [Concomitant]
  6. INVEGA [Concomitant]
  7. KLONOPIN [Concomitant]
  8. NEURONTIN [Concomitant]
  9. TRAZODONE HCL [Concomitant]
  10. WARFARIN SODIUM [Concomitant]
  11. COLACE [Concomitant]
  12. LIDODERM [Concomitant]
  13. DAYPRO [Concomitant]
  14. LOTREL [Concomitant]
  15. TYLENOL W/ CODEINE NO. 3 [Concomitant]
  16. RANITIDINE [Concomitant]

REACTIONS (1)
  - PNEUMONIA [None]
